FAERS Safety Report 4338167-6 (Version None)
Quarter: 2004Q1

REPORT INFORMATION
  Report Type: 
  Country: None (occurrence: None)
  Receive Date: 20040329
  Receipt Date: 20040211
  Transmission Date: 20041129
  Serious: No
  Sender: FDA-Public Use
  Company Number: USA040259067

PATIENT
  Age: 27 Year
  Sex: Female
  Weight: 54 kg

DRUGS (5)
  1. STRATTERA [Suspect]
     Indication: BIPOLAR I DISORDER
     Dosage: 120 MG/1 DAY
     Dates: start: 20020101
  2. TRAZADONE (TRAZADONE) [Concomitant]
  3. GABITRIL [Concomitant]
  4. LAMICTAL [Concomitant]
  5. PRILOSEC [Concomitant]

REACTIONS (1)
  - PRESCRIBED OVERDOSE [None]
